FAERS Safety Report 4696665-X (Version None)
Quarter: 2005Q2

REPORT INFORMATION
  Report Type: 
  Country: None (occurrence: None)
  Receive Date: 20050620
  Receipt Date: 20050319
  Transmission Date: 20051028
  Serious: No
  Sender: FDA-Public Use
  Company Number: US-YAMANOUCHI-YPA20050106

PATIENT
  Age: 75 Year
  Sex: Female
  Weight: 63.5036 kg

DRUGS (7)
  1. VESICARE [Suspect]
     Indication: HYPERTONIC BLADDER
     Dosage: 10 MG QD PO
     Route: 048
     Dates: start: 20050317
  2. BACTRIM DS [Concomitant]
  3. THEOPHYLLINE [Concomitant]
  4. EXCEDRIN (MIGRAINE) [Concomitant]
  5. ATIVAN [Concomitant]
  6. OXYTROL [Concomitant]
  7. OXYGEN [Concomitant]

REACTIONS (1)
  - POLLAKIURIA [None]
